FAERS Safety Report 5629924-4 (Version None)
Quarter: 2008Q1

REPORT INFORMATION
  Report Type: 
  Country: None (occurrence: None)
  Receive Date: 20080213
  Receipt Date: 20080205
  Transmission Date: 20080703
  Serious: Yes (Hospitalization)
  Sender: FDA-Public Use
  Company Number: ADE2008-0116

PATIENT
  Age: 40 Year
  Sex: Male

DRUGS (8)
  1. DIDANOSINE [Suspect]
     Indication: HIV INFECTION
  2. LAMIVUDINE [Concomitant]
  3. ATAZANAVIR SULFATE [Concomitant]
  4. NORVIR [Concomitant]
  5. VALPROATE SODIUM [Concomitant]
  6. PAROXETINE HCL [Concomitant]
  7. ALLOPURINOL [Concomitant]
  8. BACLOFENE [Concomitant]

REACTIONS (7)
  - ACIDOSIS HYPERCHLORAEMIC [None]
  - DEHYDRATION [None]
  - FANCONI SYNDROME [None]
  - LIPOATROPHY [None]
  - MITOCHONDRIAL TOXICITY [None]
  - NEPHROGENIC DIABETES INSIPIDUS [None]
  - WEIGHT DECREASED [None]
